FAERS Safety Report 6446034-7 (Version None)
Quarter: 2009Q4

REPORT INFORMATION
  Report Type: 
  Country: None (occurrence: None)
  Receive Date: 20091119
  Receipt Date: 20091026
  Transmission Date: 20100525
  Serious: No
  Sender: FDA-Public Use
  Company Number: A0808275A

PATIENT
  Age: 39 Year
  Sex: Female

DRUGS (3)
  1. WELLBUTRIN SR [Suspect]
     Indication: BIPOLAR DISORDER
     Dosage: 150MG TWICE PER DAY
     Route: 048
     Dates: start: 20000701, end: 20090731
  2. DEPAKOTE [Concomitant]
  3. LORAZEPAM [Concomitant]

REACTIONS (6)
  - DERMATITIS ALLERGIC [None]
  - FOLLICULITIS [None]
  - PETECHIAE [None]
  - PRODUCT QUALITY ISSUE [None]
  - RASH [None]
  - RASH PRURITIC [None]
